FAERS Safety Report 9190253 (Version 2)
Quarter: 2013Q2

REPORT INFORMATION
  Report Type: Spontaneous
  Country: BR (occurrence: BR)
  Receive Date: 20130326
  Receipt Date: 20130422
  Transmission Date: 20140414
  Serious: Yes (Other)
  Sender: FDA-Public Use
  Company Number: PHHY2013BR028552

PATIENT
  Sex: Male

DRUGS (5)
  1. DIOVAN [Suspect]
     Indication: ISCHAEMIC HEART DISEASE PROPHYLAXIS
     Dosage: 80 MG, DAILY
     Route: 048
     Dates: start: 1988
  2. PLAVIX [Concomitant]
     Indication: ISCHAEMIC HEART DISEASE PROPHYLAXIS
     Dosage: 75 MG, A DAY
     Route: 048
  3. SELOSOK [Concomitant]
     Indication: ISCHAEMIC HEART DISEASE PROPHYLAXIS
     Dosage: 100 MG, A DAY
  4. CRESTOR [Concomitant]
     Indication: ISCHAEMIC HEART DISEASE PROPHYLAXIS
     Dosage: 10 MG, A DAY
     Route: 048
  5. ASPIRIN [Concomitant]
     Indication: ISCHAEMIC HEART DISEASE PROPHYLAXIS
     Dosage: 100 MG, A DAY
     Route: 048

REACTIONS (5)
  - Infarction [Unknown]
  - Haematochezia [Recovered/Resolved]
  - Gastritis [Not Recovered/Not Resolved]
  - Liver disorder [Not Recovered/Not Resolved]
  - Abdominal pain upper [Not Recovered/Not Resolved]
